FAERS Safety Report 24355469 (Version 2)
Quarter: 2024Q4

REPORT INFORMATION
  Report Type: Spontaneous
  Country: EG (occurrence: EG)
  Receive Date: 20240924
  Receipt Date: 20241004
  Transmission Date: 20250114
  Serious: Yes (Hospitalization, Other)
  Sender: NOVO NORDISK
  Company Number: EG-NOVOPROD-1275368

PATIENT
  Age: 15 Year
  Sex: Female
  Weight: 89 kg

DRUGS (7)
  1. NOVORAPID [Suspect]
     Active Substance: INSULIN ASPART
     Dosage: 10 IU/EACH MAIL MEAL OR EVEN LESS IN CASE OF LOW MEAL CONTENT.
     Route: 058
  2. NOVORAPID [Suspect]
     Active Substance: INSULIN ASPART
     Indication: Type 1 diabetes mellitus
     Dosage: 8U ACCORDING TO HER MEALS
     Route: 058
  3. NOVORAPID [Suspect]
     Active Substance: INSULIN ASPART
     Dosage: DOSE DECREASED
     Route: 058
  4. LANTUS [Concomitant]
     Active Substance: INSULIN GLARGINE
     Indication: Type 1 diabetes mellitus
     Dosage: 40 IU, QD
     Route: 058
  5. APIFORTYL [Concomitant]
     Indication: Supplementation therapy
     Dosage: 1 TAB AFTER LUNCH -1 TAB AFTER DINNER
     Route: 048
  6. TRESIBA [Suspect]
     Active Substance: INSULIN DEGLUDEC
     Indication: Type 1 diabetes mellitus
     Dosage: 38 IU, QD (NIGHT)
     Route: 058
  7. TRESIBA [Suspect]
     Active Substance: INSULIN DEGLUDEC
     Dosage: INCREASED THE DOSE
     Route: 058

REACTIONS (8)
  - Hyperchlorhydria [Recovered/Resolved]
  - Nasopharyngitis [Recovered/Resolved]
  - Hyperglycaemia [Unknown]
  - Dyspnoea [Recovered/Resolved]
  - Stress [Recovered/Resolved]
  - Depression [Recovered/Resolved]
  - Fear [Recovered/Resolved]
  - Diabetes mellitus inadequate control [Not Recovered/Not Resolved]
